FAERS Safety Report 6029476-3 (Version None)
Quarter: 2009Q1

REPORT INFORMATION
  Report Type: 
  Country: None (occurrence: None)
  Receive Date: 20090105
  Receipt Date: 20090105
  Transmission Date: 20090719
  Serious: Yes (Life-Threatening)
  Sender: FDA-Public Use
  Company Number: None

PATIENT
  Sex: Female
  Weight: 65.7716 kg

DRUGS (1)
  1. TORADOL [Suspect]
     Indication: PAIN IN EXTREMITY
     Dosage: 15MG ONCE IM
     Route: 030
     Dates: start: 20090104

REACTIONS (5)
  - AGGRESSION [None]
  - AGITATION [None]
  - FEELING ABNORMAL [None]
  - HOMICIDAL IDEATION [None]
  - NAUSEA [None]
